FAERS Safety Report 6097624-5 (Version None)
Quarter: 2009Q1

REPORT INFORMATION
  Report Type: 
  Country: None (occurrence: None)
  Receive Date: 20090225
  Receipt Date: 20090225
  Transmission Date: 20090719
  Serious: No
  Sender: FDA-Public Use
  Company Number: None

PATIENT
  Sex: Female
  Weight: 65.318 kg

DRUGS (1)
  1. MIRENA [Suspect]

REACTIONS (10)
  - BACK PAIN [None]
  - FAMILY STRESS [None]
  - ILL-DEFINED DISORDER [None]
  - LOSS OF LIBIDO [None]
  - MARITAL PROBLEM [None]
  - MOOD SWINGS [None]
  - NASAL CONGESTION [None]
  - PERSONALITY CHANGE [None]
  - SINUS DISORDER [None]
  - VAGINAL DISORDER [None]
